FAERS Safety Report 6155027-9 (Version None)
Quarter: 2009Q2

REPORT INFORMATION
  Report Type: 
  Country: None (occurrence: None)
  Receive Date: 20090410
  Receipt Date: 20090403
  Transmission Date: 20091009
  Serious: Yes (Hospitalization)
  Sender: FDA-Public Use
  Company Number: 2009SP003324

PATIENT
  Sex: Male

DRUGS (1)
  1. PEGATRON (PEGINTERFERON ALFA-2B W/RIBAVIRIN) (PEGYLATED INTERFERON ALF [Suspect]
     Dates: start: 20081201

REACTIONS (1)
  - TOOTH ABSCESS [None]
